FAERS Safety Report 17447236 (Version 1)
Quarter: 2020Q1

REPORT INFORMATION
  Report Type: Spontaneous
  Country: JP (occurrence: JP)
  Receive Date: 20200221
  Receipt Date: 20200221
  Transmission Date: 20200409
  Serious: Yes (Hospitalization)
  Sender: FDA-Public Use
  Company Number: JP-ALLERGAN-2007997US

PATIENT
  Sex: Female

DRUGS (2)
  1. URSODEOXYCHOLIC ACID - BP [Suspect]
     Active Substance: URSODIOL
     Indication: ABDOMINAL DISCOMFORT
     Route: 048
  2. URSODEOXYCHOLIC ACID - BP [Suspect]
     Active Substance: URSODIOL
     Indication: DYSPEPSIA

REACTIONS (3)
  - Cholelithiasis [Unknown]
  - Liver function test increased [Unknown]
  - Cholecystitis [Unknown]
